FAERS Safety Report 4861456-3 (Version None)
Quarter: 2005Q4

REPORT INFORMATION
  Report Type: 
  Country: None (occurrence: None)
  Receive Date: 20051220
  Receipt Date: 20051208
  Transmission Date: 20060501
  Serious: Yes (Hospitalization)
  Sender: FDA-Public Use
  Company Number: US-BRISTOL-MYERS SQUIBB COMPANY-13208681

PATIENT
  Age: 58 Year
  Sex: Female

DRUGS (4)
  1. CARBOPLATIN [Suspect]
     Indication: NON-SMALL CELL LUNG CANCER
     Dates: start: 20011019, end: 20011019
  2. TAXOL [Suspect]
     Indication: NON-SMALL CELL LUNG CANCER
     Dates: start: 20011019, end: 20011019
  3. CELEBREX [Suspect]
     Indication: NON-SMALL CELL LUNG CANCER
     Dates: start: 20011019, end: 20011019
  4. RADIATION THERAPY [Suspect]
     Indication: NON-SMALL CELL LUNG CANCER
     Dates: start: 20011019, end: 20011019

REACTIONS (1)
  - AORTIC THROMBOSIS [None]
